FAERS Safety Report 8977054 (Version 1)
Quarter: 2012Q4

REPORT INFORMATION
  Report Type: 
  Country: US (occurrence: US)
  Receive Date: 20121220
  Receipt Date: 20121220
  Transmission Date: 20130627
  Serious: Yes (Hospitalization)
  Sender: FDA-Public Use
  Company Number: US-JNJFOC-20121205268

PATIENT
  Age: 13 Year
  Sex: Male
  Weight: 58.97 kg

DRUGS (5)
  1. CONCERTA [Suspect]
     Indication: ATTENTION DEFICIT/HYPERACTIVITY DISORDER
     Route: 048
  2. CONCERTA [Suspect]
     Indication: ATTENTION DEFICIT/HYPERACTIVITY DISORDER
     Route: 048
  3. CONCERTA [Suspect]
     Indication: ATTENTION DEFICIT/HYPERACTIVITY DISORDER
     Route: 048
     Dates: end: 2005
  4. CONCERTA [Suspect]
     Indication: ATTENTION DEFICIT/HYPERACTIVITY DISORDER
     Route: 048
     Dates: start: 2010
  5. UNKNOWN MEDICATION [Concomitant]
     Route: 065

REACTIONS (6)
  - Hospitalisation [Not Recovered/Not Resolved]
  - Psychomotor hyperactivity [Unknown]
  - Constipation [Not Recovered/Not Resolved]
  - Emotional disorder [Unknown]
  - Medication residue [Not Recovered/Not Resolved]
  - Drug administered to patient of inappropriate age [Unknown]
